FAERS Safety Report 7110064-2 (Version None)
Quarter: 2010Q4

REPORT INFORMATION
  Report Type: 
  Country: None (occurrence: None)
  Receive Date: 20101112
  Receipt Date: 20101027
  Transmission Date: 20110411
  Serious: Yes (Hospitalization)
  Sender: FDA-Public Use
  Company Number: 1-18205266

PATIENT
  Age: 68 Year
  Sex: Female
  Weight: 79.8331 kg

DRUGS (8)
  1. QUININE SULFATE [Suspect]
     Indication: MUSCLE SPASMS
     Dosage: TWICE DAILY, ORAL
     Route: 048
     Dates: start: 20040101, end: 20080401
  2. ZESTRIL [Concomitant]
  3. ASPIRIN [Concomitant]
  4. LEVOTHYROXINE SODIUM [Concomitant]
  5. WARFARIN SODIUM [Concomitant]
  6. ASCORBIC ACID [Concomitant]
  7. CALCIUM [Concomitant]
  8. MAGNESIUM [Concomitant]

REACTIONS (26)
  - ANTIPHOSPHOLIPID SYNDROME [None]
  - ASTHENIA [None]
  - BACK PAIN [None]
  - CHEST PAIN [None]
  - CHILLS [None]
  - CONTUSION [None]
  - CYSTITIS HAEMORRHAGIC [None]
  - DIZZINESS [None]
  - DRUG HYPERSENSITIVITY [None]
  - DRUG INEFFECTIVE [None]
  - EMOTIONAL DISTRESS [None]
  - FEELING ABNORMAL [None]
  - HEADACHE [None]
  - HYPOAESTHESIA ORAL [None]
  - HYPOTHYROIDISM [None]
  - LICHEN PLANUS [None]
  - MIGRAINE [None]
  - MUSCLE SPASMS [None]
  - NAUSEA [None]
  - PAIN [None]
  - PYREXIA [None]
  - THROMBOTIC THROMBOCYTOPENIC PURPURA [None]
  - TRANSIENT ISCHAEMIC ATTACK [None]
  - UNEVALUABLE EVENT [None]
  - VISION BLURRED [None]
  - VOMITING [None]
